FAERS Safety Report 7470558-7 (Version None)
Quarter: 2011Q2

REPORT INFORMATION
  Report Type: 
  Country: None (occurrence: None)
  Receive Date: 20110510
  Receipt Date: 20110422
  Transmission Date: 20111010
  Serious: No
  Sender: FDA-Public Use
  Company Number: US-B.I. PHARMACEUTICALS,INC./RIDGEFIELD-2011-BP-06938BP

PATIENT
  Sex: Male

DRUGS (10)
  1. BYSTOLIC [Concomitant]
     Dosage: 20 MG
  2. TIERNA [Concomitant]
     Dosage: 300 MG
  3. PRADAXA [Suspect]
     Indication: ATRIAL FIBRILLATION
     Dosage: 300 MG
     Route: 048
     Dates: start: 20110119, end: 20110226
  4. ASPIRIN [Concomitant]
     Dosage: 81 MG
  5. LEVOTHYROXINE SODIUM [Concomitant]
     Dosage: 0.05 MG
  6. FUROSEMIDE [Concomitant]
     Dosage: 20 MG
  7. LOVAZA [Concomitant]
     Dosage: 1 G
  8. COQ10 [Concomitant]
     Dosage: 200 MG
  9. VITAMIN D [Concomitant]
     Dosage: 1000 RT
  10. ALEC LIGHT [Concomitant]
     Dosage: 900 MG

REACTIONS (5)
  - ANORECTAL DISCOMFORT [None]
  - MELAENA [None]
  - HAEMATOCHEZIA [None]
  - ABNORMAL FAECES [None]
  - ABDOMINAL PAIN UPPER [None]
